FAERS Safety Report 7382543-4 (Version None)
Quarter: 2011Q1

REPORT INFORMATION
  Report Type: 
  Country: None (occurrence: None)
  Receive Date: 20110329
  Receipt Date: 20110324
  Transmission Date: 20110831
  Serious: Yes (Other)
  Sender: FDA-Public Use
  Company Number: DE-BRISTOL-MYERS SQUIBB COMPANY-15635543

PATIENT
  Age: 23 Year
  Sex: Female
  Weight: 85 kg

DRUGS (4)
  1. ONGLYZA [Suspect]
     Indication: TYPE 2 DIABETES MELLITUS
     Route: 048
     Dates: start: 20110117
  2. GLIMEPIRIDE [Suspect]
     Indication: DIABETES MELLITUS
     Route: 048
  3. METFORMIN HCL [Suspect]
     Indication: TYPE 2 DIABETES MELLITUS
     Dosage: 1 DF = 1000 UNITS NOS
     Route: 048
  4. BISOPROLOL [Suspect]
     Dosage: 1 DF = 5 UNITS NOS
     Route: 048

REACTIONS (2)
  - MUSCULOSKELETAL PAIN [None]
  - BRONCHITIS [None]
